FAERS Safety Report 12591686 (Version 1)
Quarter: 2016Q3

REPORT INFORMATION
  Report Type: Spontaneous
  Country: US (occurrence: US)
  Receive Date: 20160726
  Receipt Date: 20160726
  Transmission Date: 20161109
  Serious: No
  Sender: FDA-Public Use
  Company Number: US-UNITED THERAPEUTICS-UNT-2016-001668

PATIENT
  Age: 80 Year
  Sex: Female
  Weight: 68.93 kg

DRUGS (1)
  1. ORENITRAM [Suspect]
     Active Substance: TREPROSTINIL
     Indication: PULMONARY ARTERIAL HYPERTENSION
     Dosage: 0.5 MG, TID
     Route: 048
     Dates: start: 20150707, end: 20160214

REACTIONS (8)
  - Treatment noncompliance [Unknown]
  - Weight increased [Unknown]
  - Localised oedema [Unknown]
  - Oedema peripheral [Recovered/Resolved]
  - Fluid retention [Unknown]
  - Headache [Recovered/Resolved]
  - Abdominal discomfort [Recovered/Resolved]
  - Therapy cessation [Unknown]

NARRATIVE: CASE EVENT DATE: 201602
